FAERS Safety Report 15757057 (Version 1)
Quarter: 2018Q4

REPORT INFORMATION
  Report Type: Spontaneous
  Country: US (occurrence: US)
  Receive Date: 20181206
  Receipt Date: 20181206
  Transmission Date: 20190205
  Serious: No
  Sender: FDA-Public Use
  Company Number: None

PATIENT
  Age: 58 Year
  Sex: Male

DRUGS (4)
  1. OXYCODONE 5 MG [Concomitant]
     Dates: start: 20180503
  2. AMLODIPINE [Concomitant]
     Active Substance: AMLODIPINE BESYLATE
  3. ALPRAZOLAM. [Suspect]
     Active Substance: ALPRAZOLAM
     Indication: ANXIETY
     Route: 048
     Dates: start: 20180309, end: 20181203
  4. DICOLFENAC 75 MG [Concomitant]

REACTIONS (2)
  - Product substitution issue [None]
  - Middle insomnia [None]

NARRATIVE: CASE EVENT DATE: 20181206
